FAERS Safety Report 7787788-7 (Version None)
Quarter: 2011Q3

REPORT INFORMATION
  Report Type: 
  Country: None (occurrence: None)
  Receive Date: 20110930
  Receipt Date: 20110927
  Transmission Date: 20111222
  Serious: Yes (Hospitalization, Other)
  Sender: FDA-Public Use
  Company Number: DE-BRISTOL-MYERS SQUIBB COMPANY-16036477

PATIENT
  Age: 49 Year
  Sex: Male

DRUGS (1)
  1. YERVOY [Suspect]
     Indication: MALIGNANT MELANOMA
     Dates: start: 20110823

REACTIONS (6)
  - GENERAL PHYSICAL HEALTH DETERIORATION [None]
  - BLOOD THYROID STIMULATING HORMONE INCREASED [None]
  - DECREASED APPETITE [None]
  - NEUTROPENIA [None]
  - CONSTIPATION [None]
  - THROMBOCYTOPENIA [None]
